FAERS Safety Report 23076624 (Version 13)
Quarter: 2025Q1

REPORT INFORMATION
  Report Type: Spontaneous
  Country: JP (occurrence: JP)
  Receive Date: 20231017
  Receipt Date: 20250227
  Transmission Date: 20250409
  Serious: No
  Sender: JOHNSON AND JOHNSON
  Company Number: JP-JNJFOC-20230921232

PATIENT
  Age: 81 Year
  Sex: Male

DRUGS (2)
  1. UPTRAVI [Suspect]
     Active Substance: SELEXIPAG
     Indication: Pulmonary hypertension
     Dosage: 1.2 MG DAILY
     Route: 048
     Dates: start: 20230309, end: 20230323
  2. UPTRAVI [Suspect]
     Active Substance: SELEXIPAG
     Dosage: 1.6 MG
     Route: 048
     Dates: start: 20230324

REACTIONS (14)
  - Limb discomfort [Not Recovered/Not Resolved]
  - Diarrhoea [Recovered/Resolved]
  - Dizziness postural [Not Recovered/Not Resolved]
  - COVID-19 [Recovered/Resolved]
  - Gynaecomastia [Recovering/Resolving]
  - Large intestine polyp [Recovering/Resolving]
  - Echocardiogram abnormal [Recovering/Resolving]
  - Blood pressure increased [Not Recovered/Not Resolved]
  - Myalgia [Recovering/Resolving]
  - Oropharyngeal discomfort [Not Recovered/Not Resolved]
  - Rhinorrhoea [Recovered/Resolved]
  - Cough [Not Recovered/Not Resolved]
  - Renal function test abnormal [Not Recovered/Not Resolved]
  - Pollakiuria [Not Recovered/Not Resolved]

NARRATIVE: CASE EVENT DATE: 20230101
